FAERS Safety Report 6344062-3 (Version None)
Quarter: 2009Q3

REPORT INFORMATION
  Report Type: 
  Country: None (occurrence: None)
  Receive Date: 20090908
  Receipt Date: 20090818
  Transmission Date: 20100115
  Serious: Yes (Hospitalization)
  Sender: FDA-Public Use
  Company Number: US-BRISTOL-MYERS SQUIBB COMPANY-14767743

PATIENT
  Age: 64 Year
  Sex: Female
  Weight: 72 kg

DRUGS (3)
  1. CETUXIMAB [Suspect]
     Indication: NON-SMALL CELL LUNG CANCER METASTATIC
     Dosage: FIFTH AND MOST RECENT INFUSION (449MG) 11-AUG-2009
     Route: 042
     Dates: start: 20090713
  2. PACLITAXEL [Suspect]
     Indication: NON-SMALL CELL LUNG CANCER METASTATIC
     Dosage: SECOND AND MOST RECENT INFUSION (364MG) 04-AUG-2009
     Route: 042
     Dates: start: 20090713
  3. CARBOPLATIN [Suspect]
     Indication: NON-SMALL CELL LUNG CANCER METASTATIC
     Dosage: SECOND AND MOST RECENT INFUSION (429MG) 04-AUG-2009
     Route: 042
     Dates: start: 20090713

REACTIONS (2)
  - PNEUMONIA [None]
  - TACHYCARDIA [None]
